FAERS Safety Report 6111033-1 (Version None)
Quarter: 2009Q1

REPORT INFORMATION
  Report Type: 
  Country: None (occurrence: None)
  Receive Date: 20090311
  Receipt Date: 20080317
  Transmission Date: 20090719
  Serious: No
  Sender: FDA-Public Use
  Company Number: US-KINGPHARMUSA00001-K200800337

PATIENT
  Age: 80 Year
  Sex: Female

DRUGS (7)
  1. ALTACE [Suspect]
     Dosage: 5 MG, BID
     Route: 048
  2. ALTACE [Suspect]
     Dosage: 7.5 MG, BID
     Route: 048
     Dates: end: 20080301
  3. ALTACE [Suspect]
     Dosage: 10 MG, BID
     Route: 048
     Dates: start: 20080301
  4. HYDROCHLOROTHIAZIDE [Concomitant]
     Dosage: 12.5 MG, UNK
     Dates: start: 20080301
  5. HYDROCHLOROTHIAZIDE [Concomitant]
  6. HYDROCHLOROTHIAZIDE [Concomitant]
     Dosage: 7.5 MG BID
  7. HYDROCHLOROTHIAZIDE [Concomitant]
     Dosage: 7.5 MG BID

REACTIONS (2)
  - BLOOD PRESSURE INCREASED [None]
  - TINNITUS [None]
